FAERS Safety Report 11381054 (Version 1)
Quarter: 2015Q3

REPORT INFORMATION
  Report Type: Spontaneous
  Country: CA (occurrence: CA)
  Receive Date: 20150814
  Receipt Date: 20150814
  Transmission Date: 20151125
  Serious: Yes (Hospitalization, Other)
  Sender: FDA-Public Use
  Company Number: CA-ACTAVIS-2015-16967

PATIENT
  Age: 64 Year
  Sex: Male

DRUGS (1)
  1. DONEPEZIL HYDROCHLORIDE (UNKNOWN) [Suspect]
     Active Substance: DONEPEZIL HYDROCHLORIDE
     Indication: WRONG DRUG ADMINISTERED
     Dosage: UNK
     Route: 065

REACTIONS (2)
  - Wrong drug administered [Unknown]
  - Mania [Recovered/Resolved]
